FAERS Safety Report 17084289 (Version 1)
Quarter: 2019Q4

REPORT INFORMATION
  Report Type: Spontaneous
  Country: CN (occurrence: CN)
  Receive Date: 20191127
  Receipt Date: 20191127
  Transmission Date: 20200122
  Serious: Yes (Hospitalization, Other)
  Sender: FDA-Public Use
  Company Number: CN-009507513-1911CHN009664

PATIENT
  Age: 63 Year
  Sex: Male
  Weight: 45 kg

DRUGS (4)
  1. KEYTRUDA [Suspect]
     Active Substance: PEMBROLIZUMAB
     Indication: GASTRIC CANCER
     Dosage: 100 MILLIGRAM
     Route: 041
     Dates: start: 20191031, end: 20191031
  2. PACLITAXEL. [Suspect]
     Active Substance: PACLITAXEL
     Indication: GASTRIC CANCER
     Dosage: 188 MILLIGRAM
     Route: 041
     Dates: start: 20191104, end: 20191104
  3. TRASTUZUMAB. [Suspect]
     Active Substance: TRASTUZUMAB
     Indication: GASTRIC CANCER
     Dosage: 267 MILLIGRAM
     Route: 041
     Dates: start: 20191030, end: 20191030
  4. PACLITAXEL. [Suspect]
     Active Substance: PACLITAXEL
     Dosage: 188 MILLIGRAM
     Route: 041
     Dates: start: 20191111, end: 20191111

REACTIONS (3)
  - Asthenia [Recovering/Resolving]
  - White blood cell count decreased [Recovering/Resolving]
  - Chills [Recovering/Resolving]

NARRATIVE: CASE EVENT DATE: 20191118
